FAERS Safety Report 10086082 (Version 1)
Quarter: 2014Q2

REPORT INFORMATION
  Report Type: Spontaneous
  Country: None (occurrence: None)
  Receive Date: 20140415
  Receipt Date: 20140415
  Transmission Date: 20141212
  Serious: Yes (Other)
  Sender: FDA-Public Use
  Company Number: 09-AUR-10119

PATIENT
  Age: 38 Year
  Sex: Male

DRUGS (4)
  1. ZIDOVUDINE [Suspect]
     Indication: HIV INFECTION
  2. LAMIVUDINE [Suspect]
     Indication: HIV INFECTION
  3. ABACAVIR [Suspect]
     Indication: HIV INFECTION
  4. TENOFOVIR [Suspect]
     Indication: HIV INFECTION

REACTIONS (4)
  - Immune reconstitution inflammatory syndrome [None]
  - Motor dysfunction [None]
  - Cognitive disorder [None]
  - Cerebral disorder [None]
